FAERS Safety Report 7417424-0 (Version None)
Quarter: 2011Q2

REPORT INFORMATION
  Report Type: 
  Country: None (occurrence: None)
  Receive Date: 20110412
  Receipt Date: 20110412
  Transmission Date: 20111010
  Serious: Yes (Hospitalization, Disabling, Other)
  Sender: FDA-Public Use
  Company Number: None

PATIENT
  Sex: Female
  Weight: 93.8946 kg

DRUGS (1)
  1. RISPERDAL [Suspect]
     Indication: BIPOLAR DISORDER
     Dosage: 4MG A DAY ONCE A DAY; 6MG A DAY ONCE A DAY

REACTIONS (5)
  - FLATULENCE [None]
  - ROAD TRAFFIC ACCIDENT [None]
  - BLOOD PRESSURE DECREASED [None]
  - DIARRHOEA [None]
  - ALOPECIA [None]
